FAERS Safety Report 24039369 (Version 3)
Quarter: 2024Q3

REPORT INFORMATION
  Report Type: Spontaneous
  Country: JP (occurrence: None)
  Receive Date: 20240702
  Receipt Date: 20240916
  Transmission Date: 20241017
  Serious: Yes (Death, Hospitalization, Other)
  Sender: ASTRAZENECA
  Company Number: 2024A148795

PATIENT
  Age: 61 Year
  Sex: Male

DRUGS (3)
  1. IMFINZI [Suspect]
     Active Substance: DURVALUMAB
     Indication: Non-small cell lung cancer
     Dosage: 1500.0MG UNKNOWN
     Route: 041
     Dates: end: 20240606
  2. IMJUDO [Suspect]
     Active Substance: TREMELIMUMAB\TREMELIMUMAB-ACTL
     Indication: Non-small cell lung cancer
     Dosage: 75.0MG UNKNOWN
     Route: 041
     Dates: end: 20240606
  3. ABRAXANE [Concomitant]
     Active Substance: PACLITAXEL
     Indication: Non-small cell lung cancer
     Dosage: DOSE UNKNOWN
     Dates: start: 20240404, end: 20240613

REACTIONS (5)
  - Mucosal disorder [Fatal]
  - Interstitial lung disease [Fatal]
  - Odynophagia [Unknown]
  - Eating disorder [Unknown]
  - Cytokine release syndrome [Unknown]

NARRATIVE: CASE EVENT DATE: 20240101
